FAERS Safety Report 14340460 (Version 2)
Quarter: 2018Q1

REPORT INFORMATION
  Report Type: Report from Study
  Country: SI (occurrence: SI)
  Receive Date: 20180101
  Receipt Date: 20180206
  Transmission Date: 20180509
  Serious: Yes (Death, Hospitalization, Other)
  Sender: FDA-Public Use
  Company Number: SI-ROCHE-701250

PATIENT

DRUGS (9)
  1. METHYLPREDNISOLONE. [Suspect]
     Active Substance: METHYLPREDNISOLONE
     Indication: PROPHYLAXIS AGAINST TRANSPLANT REJECTION
     Dosage: DAY 1
     Route: 042
  2. METHYLPREDNISOLONE. [Suspect]
     Active Substance: METHYLPREDNISOLONE
     Dosage: FROM DAY 4
     Route: 048
  3. DILTIAZEM. [Concomitant]
     Active Substance: DILTIAZEM
     Dosage: DOSE: 60-90 MG THREE TIME DAILY ON DAY 4
     Route: 048
  4. DACLIZUMAB [Suspect]
     Active Substance: DACLIZUMAB
     Indication: PROPHYLAXIS AGAINST TRANSPLANT REJECTION
     Route: 042
  5. CICLOSPORIN [Suspect]
     Active Substance: CYCLOSPORINE
     Indication: PROPHYLAXIS AGAINST TRANSPLANT REJECTION
     Route: 042
  6. SULFAMETHOXAZOLE/TRIMETHOPRIM [Concomitant]
     Active Substance: SULFAMETHOXAZOLE\TRIMETHOPRIM
     Indication: PROPHYLAXIS
  7. MYCOPHENOLATE MOFETIL. [Suspect]
     Active Substance: MYCOPHENOLATE MOFETIL
     Indication: PROPHYLAXIS AGAINST TRANSPLANT REJECTION
     Dosage: DOSE: 0.75 MG THRICE DAILY FOR PATIENT WITH WEIGHT MORE THAN 50 AND 0.5 MG FOR LESS THAN 50 KG
     Route: 065
  8. DILTIAZEM. [Concomitant]
     Active Substance: DILTIAZEM
     Dosage: 0.0022 MG/KG PER MINUTE
     Route: 042
  9. CYCLOSPORINE MICROEMULSION [Suspect]
     Active Substance: CYCLOSPORINE
     Indication: PROPHYLAXIS AGAINST TRANSPLANT REJECTION
     Dosage: DOSE TAKEN ON DAY 2
     Route: 042

REACTIONS (18)
  - Fungal infection [Unknown]
  - Thrombosis [Unknown]
  - Cardiac arrest [Fatal]
  - Transplant rejection [Unknown]
  - Urinary tract infection [Unknown]
  - Wound infection [Unknown]
  - Herpes zoster [Unknown]
  - Thrombotic microangiopathy [Unknown]
  - Pneumonia [Unknown]
  - Malignant melanoma [Unknown]
  - Aspergillus infection [Unknown]
  - Delayed graft function [Unknown]
  - Sepsis [Fatal]
  - Cytomegalovirus infection [Unknown]
  - Herpes virus infection [Unknown]
  - Graft loss [Unknown]
  - Diabetes mellitus [Unknown]
  - Pyelonephritis [Unknown]
